FAERS Safety Report 6139787-9 (Version None)
Quarter: 2009Q2

REPORT INFORMATION
  Report Type: 
  Country: None (occurrence: None)
  Receive Date: 20090401
  Receipt Date: 20090327
  Transmission Date: 20091009
  Serious: Yes (Hospitalization)
  Sender: FDA-Public Use
  Company Number: B0546096A

PATIENT
  Age: 89 Year
  Sex: Female

DRUGS (1)
  1. PAROXETINE HCL [Suspect]
     Indication: ANXIETY
     Dosage: 20MG PER DAY
     Route: 048
     Dates: start: 20080201, end: 20080304

REACTIONS (7)
  - ACTIVATION SYNDROME [None]
  - AKATHISIA [None]
  - INSOMNIA [None]
  - IRRITABILITY [None]
  - MANIA [None]
  - NERVOUSNESS [None]
  - RESTLESSNESS [None]
